FAERS Safety Report 9536975 (Version 1)
Quarter: 2013Q3

REPORT INFORMATION
  Report Type: Spontaneous
  Country: US (occurrence: None)
  Receive Date: 20130918
  Receipt Date: 20130918
  Transmission Date: 20140515
  Serious: Yes (Hospitalization)
  Sender: FDA-Public Use
  Company Number: None

PATIENT
  Age: 3 Year
  Sex: Female
  Weight: 12.9 kg

DRUGS (2)
  1. ISRADIPINE 2.5 MG WATSON [Suspect]
     Indication: HYPERTENSION
     Dosage: 2MG TID ORAL
     Route: 048
     Dates: start: 20130622, end: 20130709
  2. HYDRALAZINE [Concomitant]

REACTIONS (1)
  - Pyrexia [None]
